FAERS Safety Report 18459894 (Version 1)
Quarter: 2020Q4

REPORT INFORMATION
  Report Type: Spontaneous
  Country: US (occurrence: US)
  Receive Date: 20201103
  Receipt Date: 20201103
  Transmission Date: 20210114
  Serious: Yes (Disabling, Other)
  Sender: FDA-Public Use
  Company Number: US-PURDUE-USA-2020-0174068

PATIENT

DRUGS (1)
  1. OXYCODONE HYDROCHLORIDE (SIMILAR TO NDA 22-272) [Suspect]
     Active Substance: OXYCODONE HYDROCHLORIDE
     Indication: JOINT INJURY
     Dosage: UNK
     Route: 048

REACTIONS (6)
  - Post-traumatic stress disorder [Unknown]
  - Mood swings [Unknown]
  - Headache [Unknown]
  - Disability [Unknown]
  - Surgery [Unknown]
  - Decreased appetite [Unknown]

NARRATIVE: CASE EVENT DATE: 2009
